FAERS Safety Report 21889817 (Version 9)
Quarter: 2023Q2

REPORT INFORMATION
  Report Type: Report from Study
  Country: AU (occurrence: AU)
  Receive Date: 20230120
  Receipt Date: 20230403
  Transmission Date: 20230722
  Serious: Yes (Hospitalization)
  Sender: FDA-Public Use
  Company Number: AU-002147023-NVSC2023AU011037

PATIENT
  Age: 51 Year
  Sex: Female
  Weight: 65.5 kg

DRUGS (19)
  1. OFATUMUMAB [Suspect]
     Active Substance: OFATUMUMAB
     Indication: Relapsing multiple sclerosis
     Dosage: 20 MG, QMO
     Route: 058
     Dates: start: 20210520
  2. BROMHEXINE HYDROCHLORIDE [Concomitant]
     Active Substance: BROMHEXINE HYDROCHLORIDE
     Indication: Cough
     Dosage: UNK
     Route: 065
     Dates: start: 20170606
  3. CRANBERRY [Concomitant]
     Active Substance: CRANBERRY
     Indication: Prophylaxis urinary tract infection
     Dosage: UNK
     Route: 065
     Dates: start: 20180606
  4. PHENERGAN [Concomitant]
     Active Substance: PROMETHAZINE HYDROCHLORIDE
     Indication: Insomnia
     Dosage: UNK
     Route: 065
     Dates: start: 20181111
  5. DIETARY SUPPLEMENT\PROBIOTICS [Concomitant]
     Active Substance: DIETARY SUPPLEMENT\PROBIOTICS NOS
     Indication: General physical condition
     Dosage: UNK
     Route: 065
     Dates: start: 201812
  6. GLUCOSAMINE [Concomitant]
     Active Substance: GLUCOSAMINE
     Indication: Osteoporosis
     Dosage: UNK
     Route: 065
     Dates: start: 20190505
  7. HERBALS\TURMERIC [Concomitant]
     Active Substance: HERBALS\TURMERIC
     Indication: General physical condition
     Dosage: UNK
     Route: 065
     Dates: start: 20190505
  8. SUDAFED DAY + NIGHT [Concomitant]
     Indication: Sinusitis
     Dosage: UNK
     Route: 065
     Dates: start: 20191010
  9. IMPLANON [Concomitant]
     Active Substance: ETONOGESTREL
     Indication: Contraception
     Dosage: UNK
     Route: 065
     Dates: start: 20200114, end: 20230320
  10. PANADOL OPTIZORB [Concomitant]
     Indication: Headache
     Dosage: UNK
     Route: 065
     Dates: start: 202004
  11. PANADOL [Concomitant]
     Active Substance: ACETAMINOPHEN
     Indication: Osteoporosis
     Dosage: UNK
     Route: 065
     Dates: start: 202004
  12. MAGNESIUM [Concomitant]
     Active Substance: MAGNESIUM
     Indication: General physical condition
     Dosage: UNK
     Route: 065
     Dates: start: 20210324
  13. IRBESARTAN [Concomitant]
     Active Substance: IRBESARTAN
     Indication: Hypertension
     Dosage: UNK
     Route: 065
     Dates: start: 20210517
  14. SERTRALINE [Concomitant]
     Active Substance: SERTRALINE HYDROCHLORIDE
     Indication: Depression
     Dosage: UNK
     Route: 065
     Dates: start: 20210531
  15. MAXOLON [Concomitant]
     Active Substance: METOCLOPRAMIDE HYDROCHLORIDE
     Indication: Nausea
     Dosage: UNK
     Route: 065
     Dates: start: 20210810
  16. CALCIUM\VITAMIN D [Concomitant]
     Active Substance: CALCIUM\VITAMIN D
     Indication: General physical condition
     Dosage: 600 MG, 1000 IIU
     Route: 065
     Dates: start: 20210818
  17. VITAMIN B12 [Concomitant]
     Active Substance: CYANOCOBALAMIN
     Indication: General physical condition
     Dosage: UNK
     Route: 065
     Dates: start: 20221001
  18. PANADOL [Concomitant]
     Active Substance: ACETAMINOPHEN
     Indication: Toothache
     Dosage: UNK
     Route: 065
     Dates: start: 20230104
  19. BUTYLSCOPOLAMINE BROMIDE [Concomitant]
     Active Substance: BUTYLSCOPOLAMINE BROMIDE
     Indication: Abdominal pain lower
     Dosage: UNK
     Route: 065
     Dates: start: 20230115

REACTIONS (1)
  - Abscess limb [Recovered/Resolved]

NARRATIVE: CASE EVENT DATE: 20230116
